FAERS Safety Report 9580559 (Version 1)
Quarter: 2013Q3

REPORT INFORMATION
  Report Type: Spontaneous
  Country: US (occurrence: None)
  Receive Date: 20130916
  Receipt Date: 20130916
  Transmission Date: 20140515
  Serious: Yes (Hospitalization)
  Sender: FDA-Public Use
  Company Number: JPI-P-033251

PATIENT
  Age: 19 Year
  Sex: Male

DRUGS (2)
  1. XYREM [Suspect]
     Indication: CATAPLEXY
     Dosage: 6 GM (3 GM, 2 IN 1 D)
     Route: 048
     Dates: start: 20130205, end: 2013
  2. STIMULANTS [Concomitant]

REACTIONS (2)
  - Panic attack [None]
  - Intentional drug misuse [None]
